FAERS Safety Report 20824774 (Version 2)
Quarter: 2022Q2

REPORT INFORMATION
  Report Type: Spontaneous
  Country: DE (occurrence: DE)
  Receive Date: 20220513
  Receipt Date: 20220606
  Transmission Date: 20220721
  Serious: Yes (Other)
  Sender: FDA-Public Use
  Company Number: DE-002147023-NVSC2022DE023266

PATIENT
  Sex: Female
  Weight: 84 kg

DRUGS (9)
  1. LUCENTIS [Suspect]
     Active Substance: RANIBIZUMAB
     Indication: Macular oedema
     Dosage: UNK, QMO
     Route: 047
     Dates: start: 20201211
  2. LUCENTIS [Suspect]
     Active Substance: RANIBIZUMAB
     Dosage: UNK UNK, QMO
     Route: 047
     Dates: start: 20210111
  3. LUCENTIS [Suspect]
     Active Substance: RANIBIZUMAB
     Dosage: UNK UNK, QMO
     Route: 047
     Dates: start: 20210205
  4. LUCENTIS [Suspect]
     Active Substance: RANIBIZUMAB
     Dosage: UNK UNK, QMO
     Route: 047
     Dates: start: 20210319
  5. LUCENTIS [Suspect]
     Active Substance: RANIBIZUMAB
     Dosage: UNK UNK, QMO
     Route: 047
     Dates: start: 20210419
  6. LUCENTIS [Suspect]
     Active Substance: RANIBIZUMAB
     Dosage: UNK UNK, QMO
     Route: 047
     Dates: start: 20210517
  7. LUCENTIS [Suspect]
     Active Substance: RANIBIZUMAB
     Dosage: UNK UNK, QMO
     Route: 047
     Dates: start: 20210614
  8. LUCENTIS [Suspect]
     Active Substance: RANIBIZUMAB
     Dosage: UNK UNK, QMO
     Route: 047
     Dates: start: 20210712
  9. LUCENTIS [Suspect]
     Active Substance: RANIBIZUMAB
     Dosage: UNK UNK, QMO
     Route: 047
     Dates: end: 20210809

REACTIONS (2)
  - Macular oedema [Not Recovered/Not Resolved]
  - Condition aggravated [Not Recovered/Not Resolved]

NARRATIVE: CASE EVENT DATE: 20210301
